FAERS Safety Report 7748229-9 (Version None)
Quarter: 2011Q3

REPORT INFORMATION
  Report Type: 
  Country: None (occurrence: None)
  Receive Date: 20110913
  Receipt Date: 20110906
  Transmission Date: 20111222
  Serious: Yes (Life-Threatening, Hospitalization)
  Sender: FDA-Public Use
  Company Number: FR-ELI_LILLY_AND_COMPANY-FR201109001256

PATIENT
  Sex: Male

DRUGS (6)
  1. BISOPROLOL FUMARATE [Concomitant]
     Dosage: 2.5 MG, UNK
     Route: 048
  2. SPASFON [Concomitant]
     Dosage: 2 DF, TID
     Route: 048
  3. ALFUZOSIN HCL [Concomitant]
     Dosage: 10 MG, QD
     Route: 048
  4. XANAX [Concomitant]
     Dosage: 0.25 MG, QD
     Route: 048
  5. CYMBALTA [Suspect]
     Indication: DEPRESSION
     Dosage: 60 MG, QD
     Route: 048
     Dates: end: 20110802
  6. VALSARTAN [Concomitant]
     Dosage: 80 MG, QD
     Route: 048

REACTIONS (8)
  - URINARY RETENTION [None]
  - MUSCLE SPASMS [None]
  - HEPATIC ENZYME INCREASED [None]
  - RENAL FAILURE ACUTE [None]
  - CONFUSIONAL STATE [None]
  - AKATHISIA [None]
  - CARDIAC FAILURE [None]
  - PSYCHOMOTOR HYPERACTIVITY [None]
